FAERS Safety Report 9115039 (Version 3)
Quarter: 2014Q3

REPORT INFORMATION
  Report Type: Spontaneous
  Country: US (occurrence: US)
  Receive Date: 20130208
  Receipt Date: 20140702
  Transmission Date: 20150326
  Serious: Yes (Hospitalization, Disabling, Other)
  Sender: FDA-Public Use
  Company Number: US-009507513-1302USA002881

PATIENT
  Sex: Female
  Weight: 61.22 kg

DRUGS (2)
  1. NUVARING [Suspect]
     Active Substance: ETHINYL ESTRADIOL\ETONOGESTREL
     Indication: CONTRACEPTION
     Dosage: UNK, Q3W
     Route: 067
     Dates: start: 2008, end: 20100326
  2. NUVARING [Suspect]
     Active Substance: ETHINYL ESTRADIOL\ETONOGESTREL
     Dosage: UNK
     Route: 067
     Dates: start: 2003

REACTIONS (12)
  - Lymphadenopathy [Unknown]
  - Rash papular [Unknown]
  - Sarcoidosis [Unknown]
  - Pulmonary embolism [Unknown]
  - Vaginal infection [Unknown]
  - Smear cervix abnormal [Unknown]
  - Haemorrhoids [Unknown]
  - Maternal exposure before pregnancy [Recovered/Resolved]
  - Colposcopy [Unknown]
  - Chlamydial infection [Unknown]
  - Smear cervix abnormal [Recovered/Resolved]
  - Cervical dysplasia [Unknown]

NARRATIVE: CASE EVENT DATE: 2006
